FAERS Safety Report 5135985-1 (Version None)
Quarter: 2006Q4

REPORT INFORMATION
  Report Type: 
  Country: None (occurrence: None)
  Receive Date: 20061020
  Receipt Date: 20061006
  Transmission Date: 20070319
  Serious: Yes (Hospitalization)
  Sender: FDA-Public Use
  Company Number: E2090-00094-CLI-DE

PATIENT
  Age: 50 Year
  Sex: Male
  Weight: 81 kg

DRUGS (3)
  1. ZONEGRAN [Suspect]
     Indication: EPILEPSY
     Dosage: 50 MG, 1 IN 1 D, ORAL
     Route: 048
     Dates: start: 20060823, end: 20060829
  2. CARBAMAZEPINE [Suspect]
     Dosage: 1.6 GM, ORAL
     Route: 048
     Dates: start: 20040101, end: 20060911
  3. VALPROIC ACID [Suspect]
     Dosage: 2.7 GM, ORAL
     Route: 048
     Dates: start: 20040101

REACTIONS (5)
  - CEREBELLAR SYNDROME [None]
  - DRUG INTERACTION [None]
  - DRUG TOXICITY [None]
  - HEPATIC STEATOSIS [None]
  - LIVER DISORDER [None]
